FAERS Safety Report 10061130 (Version 2)
Quarter: 2014Q2

REPORT INFORMATION
  Report Type: Report from Study
  Country: NI (occurrence: NI)
  Receive Date: 20140406
  Receipt Date: 20140406
  Transmission Date: 20141212
  Serious: Yes (Death)
  Sender: FDA-Public Use
  Company Number: NI-US-EMD SERONO, INC.-7266641

PATIENT
  Age: 28 Year
  Sex: Female

DRUGS (2)
  1. REBIF [Suspect]
     Indication: MULTIPLE SCLEROSIS
     Dates: start: 20130626
  2. REBIF [Suspect]
     Dosage: REDUCED DOSE
     Dates: end: 20140328

REACTIONS (5)
  - Pneumonia [Fatal]
  - Aspiration bronchial [Fatal]
  - Convulsion [Fatal]
  - Cardio-respiratory arrest [Fatal]
  - Alopecia [Not Recovered/Not Resolved]
